FAERS Safety Report 4322753-3 (Version None)
Quarter: 2004Q1

REPORT INFORMATION
  Report Type: 
  Country: None (occurrence: None)
  Receive Date: 20040324
  Receipt Date: 20040311
  Transmission Date: 20041129
  Serious: Yes (Hospitalization)
  Sender: FDA-Public Use
  Company Number: SE-GLAXOSMITHKLINE-B0326552A

PATIENT
  Sex: Female

DRUGS (2)
  1. SERETIDE DISKUS FORTE [Suspect]
     Dosage: 2PUFF PER DAY
     Route: 055
     Dates: start: 20031201
  2. VENTOLIN DISKUS [Concomitant]
     Dosage: 4PUFF PER DAY
     Route: 055

REACTIONS (2)
  - CONVULSION [None]
  - PAIN [None]
